FAERS Safety Report 7829933-0 (Version None)
Quarter: 2011Q4

REPORT INFORMATION
  Report Type: 
  Country: None (occurrence: None)
  Receive Date: 20111021
  Receipt Date: 20111004
  Transmission Date: 20120403
  Serious: Yes (Other)
  Sender: FDA-Public Use
  Company Number: DE-BAYER-2011-086694

PATIENT
  Age: 52 Year
  Sex: Female
  Weight: 83 kg

DRUGS (1)
  1. MIRENA [Suspect]
     Dosage: 20 MG/24HR, CONT
     Route: 015
     Dates: start: 20090601, end: 20110922

REACTIONS (1)
  - HEPATIC CIRRHOSIS [None]
